FAERS Safety Report 8404893-2 (Version None)
Quarter: 2012Q2

REPORT INFORMATION
  Report Type: 
  Country: None (occurrence: None)
  Receive Date: 20120601
  Receipt Date: 20120105
  Transmission Date: 20120825
  Serious: No
  Sender: FDA-Public Use
  Company Number: US-ASTRAZENECA-2012SE01193

PATIENT
  Age: 63 Year
  Sex: Female

DRUGS (2)
  1. TOPROL-XL [Concomitant]
  2. ATACAND HCT [Suspect]
     Dosage: 16/12.5 MG
     Route: 048

REACTIONS (2)
  - DRUG DOSE OMISSION [None]
  - WEIGHT DECREASED [None]
